FAERS Safety Report 25254049 (Version 1)
Quarter: 2025Q2

REPORT INFORMATION
  Report Type: Spontaneous
  Country: US (occurrence: US)
  Receive Date: 20250430
  Receipt Date: 20250430
  Transmission Date: 20250717
  Serious: Yes (Other)
  Sender: RANBAXY
  Company Number: US-SUN PHARMACEUTICAL INDUSTRIES LTD-2025R1-505374

PATIENT
  Age: 28 Year
  Sex: Female

DRUGS (1)
  1. IBUPROFEN [Suspect]
     Active Substance: IBUPROFEN
     Indication: Arthralgia
     Dosage: 800 MILLIGRAM, TID
     Route: 065

REACTIONS (4)
  - Gastric ulcer perforation [Recovered/Resolved]
  - Liver abscess [Recovered/Resolved]
  - Helicobacter infection [Recovered/Resolved]
  - Anaemia [Recovered/Resolved]
